FAERS Safety Report 25902395 (Version 1)
Quarter: 2025Q4

REPORT INFORMATION
  Report Type: Spontaneous
  Country: EU (occurrence: EU)
  Receive Date: 20251009
  Receipt Date: 20251009
  Transmission Date: 20260117
  Serious: Yes (Hospitalization, Other)
  Sender: B. BRAUN MEDICAL INC.
  Company Number: None

PATIENT
  Age: 77 Year
  Sex: Male

DRUGS (1)
  1. ACETAMINOPHEN [Suspect]
     Active Substance: ACETAMINOPHEN
     Indication: Pain
     Dosage: A SINGLE DOSE

REACTIONS (5)
  - Fixed eruption [Recovering/Resolving]
  - Generalised bullous fixed drug eruption [Recovering/Resolving]
  - Type IV hypersensitivity reaction [Recovered/Resolved]
  - Skin lesion [Recovering/Resolving]
  - Blister [Recovering/Resolving]
